FAERS Safety Report 4736864-1 (Version None)
Quarter: 2005Q3

REPORT INFORMATION
  Report Type: 
  Country: None (occurrence: None)
  Receive Date: 20050808
  Receipt Date: 20050803
  Transmission Date: 20060218
  Serious: Yes (Hospitalization)
  Sender: FDA-Public Use
  Company Number: US-0507120212

PATIENT
  Age: 82 Year
  Sex: Female

DRUGS (17)
  1. LANOXIN [Suspect]
     Indication: PROPHYLAXIS
     Route: 065
     Dates: start: 20050713, end: 20050715
  2. PREVACID [Concomitant]
     Route: 065
  3. POTASSIUM CHLORIDE [Concomitant]
     Route: 065
  4. LASIX [Concomitant]
     Route: 065
  5. NITRO [Concomitant]
     Route: 065
  6. BENICAR [Concomitant]
     Route: 065
  7. LOPRESSOR [Concomitant]
     Route: 065
  8. HEPARIN [Concomitant]
     Route: 065
  9. AMBIEN [Concomitant]
     Route: 065
  10. MILK OF MAGNESIA [Concomitant]
     Route: 065
  11. MORPHINE [Concomitant]
     Route: 065
  12. RESTORIL [Concomitant]
     Route: 065
  13. TYLENOL (CAPLET) [Concomitant]
     Route: 065
  14. VALIUM [Concomitant]
     Route: 065
  15. XANAX [Concomitant]
     Route: 065
  16. ZETIA [Concomitant]
  17. BLINDED TRIAL MEDICATION [Concomitant]
     Indication: PROPHYLAXIS

REACTIONS (6)
  - ATRIOVENTRICULAR BLOCK SECOND DEGREE [None]
  - CHEST DISCOMFORT [None]
  - CORONARY ARTERY OCCLUSION [None]
  - HEART RATE DECREASED [None]
  - MITRAL VALVE INCOMPETENCE [None]
  - MYOCARDIAL INFARCTION [None]
